FAERS Safety Report 6747285-4 (Version None)
Quarter: 2010Q2

REPORT INFORMATION
  Report Type: 
  Country: None (occurrence: None)
  Receive Date: 20100528
  Receipt Date: 20100519
  Transmission Date: 20101027
  Serious: Yes (Life-Threatening, Hospitalization)
  Sender: FDA-Public Use
  Company Number: A0860868A

PATIENT
  Sex: Male
  Weight: 74 kg

DRUGS (2)
  1. OFATUMUMAB [Suspect]
     Route: 042
     Dates: start: 20100519
  2. CHLORAMBUCIL [Suspect]
     Route: 048

REACTIONS (1)
  - ACUTE PULMONARY OEDEMA [None]
